FAERS Safety Report 5519398-6 (Version None)
Quarter: 2007Q4

REPORT INFORMATION
  Report Type: 
  Country: None (occurrence: None)
  Receive Date: 20071116
  Receipt Date: 20071112
  Transmission Date: 20080405
  Serious: Yes (Death, Other)
  Sender: FDA-Public Use
  Company Number: JP-BRISTOL-MYERS SQUIBB COMPANY-13983713

PATIENT
  Age: 54 Year
  Sex: Female

DRUGS (7)
  1. CYCLOPHOSPHAMIDE [Suspect]
     Indication: BONE MARROW CONDITIONING REGIMEN
  2. METHOTREXATE [Suspect]
     Indication: PROPHYLAXIS AGAINST GRAFT VERSUS HOST DISEASE
  3. CYCLOSPORINE [Suspect]
     Indication: PROPHYLAXIS AGAINST GRAFT VERSUS HOST DISEASE
  4. PREDNISOLONE [Concomitant]
     Indication: GRAFT VERSUS HOST DISEASE
  5. RADIOTHERAPY [Concomitant]
  6. COTRIM [Concomitant]
  7. CLINDAMYCIN [Concomitant]

REACTIONS (3)
  - CEREBRAL TOXOPLASMOSIS [None]
  - PNEUMONIA [None]
  - SEPSIS [None]
